FAERS Safety Report 5455519-1 (Version None)
Quarter: 2007Q3

REPORT INFORMATION
  Report Type: 
  Country: None (occurrence: None)
  Receive Date: 20070918
  Receipt Date: 20070907
  Transmission Date: 20080115
  Serious: Yes (Other)
  Sender: FDA-Public Use
  Company Number: CA-JNJFOC-20060705433

PATIENT
  Sex: Female

DRUGS (4)
  1. REMICADE [Suspect]
     Indication: CROHN'S DISEASE
     Dosage: EIGHT INFUSIONS ON UNKNOWN DATES
  2. BENADRYL [Concomitant]
     Indication: PREMEDICATION
  3. SOLU-CORTEF [Concomitant]
     Indication: PREMEDICATION
     Route: 042
  4. TYLENOL (CAPLET) [Concomitant]
     Indication: PREMEDICATION

REACTIONS (7)
  - CHEST PAIN [None]
  - DEHYDRATION [None]
  - DIARRHOEA [None]
  - DYSPNOEA [None]
  - LIGAMENT RUPTURE [None]
  - NAUSEA [None]
  - VOMITING [None]
